FAERS Safety Report 6671461-2 (Version None)
Quarter: 2010Q2

REPORT INFORMATION
  Report Type: 
  Country: None (occurrence: None)
  Receive Date: 20100406
  Receipt Date: 20100406
  Transmission Date: 20101027
  Serious: Yes (Disabling)
  Sender: FDA-Public Use
  Company Number: None

PATIENT
  Sex: Female
  Weight: 47.6277 kg

DRUGS (1)
  1. PREDNISONE [Suspect]
     Indication: LUNG DISORDER
     Dosage: 20 MGS AS ON BOTTLE
     Dates: start: 20091114, end: 20100301

REACTIONS (4)
  - FATIGUE [None]
  - GAIT DISTURBANCE [None]
  - SOMNOLENCE [None]
  - UNEVALUABLE EVENT [None]
